FAERS Safety Report 7397565-7 (Version None)
Quarter: 2011Q2

REPORT INFORMATION
  Report Type: 
  Country: None (occurrence: None)
  Receive Date: 20110406
  Receipt Date: 20110405
  Transmission Date: 20111010
  Serious: Yes (Hospitalization)
  Sender: FDA-Public Use
  Company Number: BE-PFIZER INC-2006009218

PATIENT
  Age: 63 Year
  Sex: Male
  Weight: 79 kg

DRUGS (5)
  1. CODEINE [Concomitant]
     Route: 048
     Dates: start: 20051001
  2. SUNITINIB MALATE [Suspect]
     Indication: GASTROINTESTINAL STROMAL TUMOUR
     Dosage: 37.5 MG, 1X/DAY; INTERVAL: 4 WKS ON/2WKS OFF
     Route: 048
     Dates: start: 20050812
  3. LASIX [Concomitant]
     Route: 048
     Dates: start: 20050922
  4. LISINOPRIL [Concomitant]
     Route: 048
     Dates: start: 20051215
  5. RHINOSPRAY [Concomitant]
     Route: 055
     Dates: start: 20051201, end: 20060101

REACTIONS (1)
  - DECUBITUS ULCER [None]
